FAERS Safety Report 16742163 (Version 1)
Quarter: 2019Q3

REPORT INFORMATION
  Report Type: Spontaneous
  Country: CA (occurrence: CA)
  Receive Date: 20190826
  Receipt Date: 20190826
  Transmission Date: 20191005
  Serious: Yes (Other)
  Sender: FDA-Public Use
  Company Number: CA-TEVA-2019-CA-1096687

PATIENT
  Age: 45 Year
  Sex: Male

DRUGS (17)
  1. IBUPROFEN. [Concomitant]
     Active Substance: IBUPROFEN
     Route: 065
  2. APO-PREDNISONE [Suspect]
     Active Substance: PREDNISONE
     Indication: PRODUCT USED FOR UNKNOWN INDICATION
     Route: 065
  3. ARAVA [Suspect]
     Active Substance: LEFLUNOMIDE
     Indication: RHEUMATOID ARTHRITIS
     Route: 065
  4. PREDNISONE. [Suspect]
     Active Substance: PREDNISONE
     Indication: RHEUMATOID ARTHRITIS
     Route: 065
  5. TOPICORT [Suspect]
     Active Substance: DESOXIMETASONE
     Indication: PRODUCT USED FOR UNKNOWN INDICATION
     Route: 065
  6. APO-WARFARIN [Suspect]
     Active Substance: WARFARIN SODIUM
     Indication: PRODUCT USED FOR UNKNOWN INDICATION
     Route: 065
  7. GOLD [Suspect]
     Active Substance: GOLD
     Indication: RHEUMATOID ARTHRITIS
     Route: 065
  8. MYOCHRYSINE [Suspect]
     Active Substance: GOLD SODIUM THIOMALATE
     Indication: RHEUMATOID ARTHRITIS
     Route: 065
  9. CORTISONE ACETATE. [Suspect]
     Active Substance: CORTISONE ACETATE
     Indication: RHEUMATOID ARTHRITIS
     Route: 065
  10. REMICADE [Suspect]
     Active Substance: INFLIXIMAB
     Indication: RHEUMATOID ARTHRITIS
     Route: 065
  11. WARFARIN SODIUM. [Suspect]
     Active Substance: WARFARIN SODIUM
     Route: 065
  12. SULFASALAZINE. [Concomitant]
     Active Substance: SULFASALAZINE
     Route: 065
  13. ACETYLSALICYLIC ACID [Suspect]
     Active Substance: ASPIRIN
     Indication: PRODUCT USED FOR UNKNOWN INDICATION
     Route: 065
  14. METHOTREXATE. [Suspect]
     Active Substance: METHOTREXATE
     Indication: RHEUMATOID ARTHRITIS
     Route: 065
  15. CORTISONE ACETATE TAB 25MG [Suspect]
     Active Substance: CORTISONE ACETATE
     Indication: RHEUMATOID ARTHRITIS
     Route: 065
  16. ENBREL [Suspect]
     Active Substance: ETANERCEPT
     Indication: RHEUMATOID ARTHRITIS
     Route: 065
  17. DESOXIMETASONE. [Suspect]
     Active Substance: DESOXIMETASONE
     Indication: PRODUCT USED FOR UNKNOWN INDICATION
     Route: 065

REACTIONS (23)
  - Aortic bruit [Unknown]
  - Nephrolithiasis [Unknown]
  - Surgery [Unknown]
  - Transfusion [Unknown]
  - Anxiety [Unknown]
  - Deformity [Unknown]
  - Drug hypersensitivity [Unknown]
  - Shoulder arthroplasty [Unknown]
  - Rheumatoid arthritis [Unknown]
  - Skin exfoliation [Unknown]
  - Arthropathy [Unknown]
  - Drug ineffective [Unknown]
  - Hypertension [Unknown]
  - Mobility decreased [Unknown]
  - Nail disorder [Unknown]
  - Elbow operation [Unknown]
  - Gastrointestinal haemorrhage [Unknown]
  - Joint effusion [Unknown]
  - Wrist deformity [Unknown]
  - Alcohol use [Unknown]
  - Ankle deformity [Unknown]
  - Fibromyalgia [Unknown]
  - Knee arthroplasty [Unknown]
